FAERS Safety Report 26108278 (Version 1)
Quarter: 2025Q4

REPORT INFORMATION
  Report Type: Spontaneous
  Country: US (occurrence: None)
  Receive Date: 20251201
  Receipt Date: 20251201
  Transmission Date: 20260117
  Serious: Yes (Hospitalization)
  Sender: FDA-CTU
  Company Number: None

PATIENT
  Age: 3 Year
  Sex: Male
  Weight: 13.5 kg

DRUGS (1)
  1. CLONIDINE [Suspect]
     Active Substance: CLONIDINE

REACTIONS (5)
  - Loss of consciousness [None]
  - Hallucination [None]
  - Crying [None]
  - Respiratory syncytial virus test positive [None]
  - Lethargy [None]

NARRATIVE: CASE EVENT DATE: 20251125
